FAERS Safety Report 7507165-3 (Version None)
Quarter: 2011Q2

REPORT INFORMATION
  Report Type: 
  Country: None (occurrence: None)
  Receive Date: 20110526
  Receipt Date: 20110511
  Transmission Date: 20111010
  Serious: Yes (Hospitalization)
  Sender: FDA-Public Use
  Company Number: FR-BAYER-2011-042678

PATIENT
  Age: 12 Year
  Sex: Male

DRUGS (13)
  1. NAPROXEN SODIUM [Suspect]
     Dosage: DAILY DOSE 2 DF
     Route: 048
     Dates: start: 20100427, end: 20101231
  2. IBUPROFEN (ADVIL) [Suspect]
     Indication: ARTHRALGIA
     Dosage: UNK
     Route: 048
     Dates: start: 20090901
  3. SODIUM BICARBONATE [Concomitant]
     Dosage: UNK
  4. AMOXICILLIN TRIHYDRATE [Suspect]
     Indication: HELICOBACTER INFECTION
     Dosage: 1 DF, TID
     Route: 048
     Dates: start: 20110207, end: 20110214
  5. PHOSPHONEUROS [Concomitant]
     Dosage: UNK
  6. LEVOCARNIL [Concomitant]
     Dosage: UNK
  7. CLARITHROMYCIN [Suspect]
     Indication: HELICOBACTER INFECTION
     Dosage: UNK
     Route: 047
     Dates: start: 20110207, end: 20110207
  8. NEXIUM [Suspect]
     Indication: GASTRIC ULCER
     Dosage: 20 MG, QD
     Route: 048
     Dates: start: 20110207
  9. NAPROXEN SODIUM [Suspect]
     Indication: ARTHRITIS
     Dosage: UNK
     Route: 048
     Dates: start: 20091101
  10. VALPROATE SODIUM [Suspect]
     Indication: CONVULSION
     Dosage: 350 MG, BID
     Route: 048
     Dates: start: 20101127
  11. HEXATRIONE [Concomitant]
     Dosage: UNK
     Dates: start: 20100427
  12. IBUPROFEN (ADVIL) [Suspect]
     Dosage: 1 DF, TID
     Route: 048
     Dates: start: 20101231
  13. UVESTEROL [Concomitant]
     Dosage: UNK
     Dates: end: 20110216

REACTIONS (1)
  - RENAL FAILURE ACUTE [None]
